FAERS Safety Report 12614022 (Version 1)
Quarter: 2016Q3

REPORT INFORMATION
  Report Type: Spontaneous
  Country: US (occurrence: US)
  Receive Date: 20160802
  Receipt Date: 20160802
  Transmission Date: 20161109
  Serious: No
  Sender: FDA-Public Use
  Company Number: US-PFIZER INC-2016369163

PATIENT
  Age: 51 Year
  Sex: Female

DRUGS (1)
  1. IBRANCE [Suspect]
     Active Substance: PALBOCICLIB
     Indication: BREAST NEOPLASM
     Dosage: 125 MG, CYCLIC (DAILY FOR 3 WEEKS, 1 WEEK OFF)
     Route: 048
     Dates: start: 20160308

REACTIONS (2)
  - Palpitations [Unknown]
  - Stomatitis [Unknown]

NARRATIVE: CASE EVENT DATE: 20160729
